FAERS Safety Report 4642941-6 (Version None)
Quarter: 2005Q2

REPORT INFORMATION
  Report Type: 
  Country: None (occurrence: None)
  Receive Date: 20050421
  Receipt Date: 20050412
  Transmission Date: 20051028
  Serious: Yes (Death)
  Sender: FDA-Public Use
  Company Number: A209533

PATIENT
  Age: 84 Year
  Sex: Female

DRUGS (4)
  1. AMLODIPINE [Suspect]
     Indication: ILL-DEFINED DISORDER
  2. SORBANGIL (ISOSORBIDE DINITRATE) [Suspect]
     Indication: ILL-DEFINED DISORDER
     Dosage: ORAL
     Route: 048
  3. VERAPAMIL [Suspect]
     Indication: ILL-DEFINED DISORDER
  4. CAPTOPRIL [Suspect]
     Indication: ILL-DEFINED DISORDER

REACTIONS (4)
  - HEPATORENAL SYNDROME [None]
  - HYPOTENSION [None]
  - LEFT VENTRICULAR FAILURE [None]
  - VASODILATATION [None]
